FAERS Safety Report 11440461 (Version 2)
Quarter: 2015Q3

REPORT INFORMATION
  Report Type: Spontaneous
  Country: DE (occurrence: DE)
  Receive Date: 20150901
  Receipt Date: 20150902
  Transmission Date: 20151125
  Serious: Yes (Other)
  Sender: FDA-Public Use
  Company Number: PHHY2015DE104479

PATIENT
  Age: 33 Year
  Sex: Male

DRUGS (4)
  1. NEBIVOLOL. [Concomitant]
     Active Substance: NEBIVOLOL
     Indication: SCHIZOPHRENIA, PARANOID TYPE
     Dosage: 2.5 MG, QD
     Route: 065
  2. AMISULPRIDE [Interacting]
     Active Substance: AMISULPRIDE
     Indication: SCHIZOPHRENIA, PARANOID TYPE
     Dosage: 800 MG, QD
     Route: 065
  3. CLOZAPINE. [Suspect]
     Active Substance: CLOZAPINE
     Dosage: 625 MG, QD
     Route: 065
  4. CLOZAPINE. [Suspect]
     Active Substance: CLOZAPINE
     Indication: SCHIZOPHRENIA, PARANOID TYPE
     Dosage: 700 MG, QD
     Route: 065

REACTIONS (4)
  - Hepatic enzyme abnormal [Recovered/Resolved]
  - Blood creatine phosphokinase increased [Recovered/Resolved]
  - Myoglobin blood increased [Unknown]
  - Drug interaction [Unknown]
